FAERS Safety Report 7622524-6 (Version None)
Quarter: 2011Q3

REPORT INFORMATION
  Report Type: 
  Country: None (occurrence: None)
  Receive Date: 20110712
  Receipt Date: 20110701
  Transmission Date: 20111222
  Serious: Yes (Other)
  Sender: FDA-Public Use
  Company Number: 2011SP028169

PATIENT
  Age: 51 Year
  Sex: Male
  Weight: 71 kg

DRUGS (13)
  1. NEORAL [Concomitant]
  2. PREDNISOLONE [Concomitant]
  3. VIRAFERONPEG [Suspect]
     Indication: HEPATITIS C
     Dates: start: 20110215
  4. REBETOL [Suspect]
     Indication: HEPATITIS C
     Dosage: 1000 MG;QD; 800 MG;QD; 600 MG;QD;
     Dates: start: 20110503
  5. REBETOL [Suspect]
     Indication: HEPATITIS C
     Dosage: 1000 MG;QD; 800 MG;QD; 600 MG;QD;
     Dates: start: 20110516, end: 20110614
  6. REBETOL [Suspect]
     Indication: HEPATITIS C
     Dosage: 1000 MG;QD; 800 MG;QD; 600 MG;QD;
     Dates: start: 20110628
  7. REBETOL [Suspect]
     Indication: HEPATITIS C
     Dosage: 1000 MG;QD; 800 MG;QD; 600 MG;QD;
     Dates: start: 20110215, end: 20110418
  8. DUSPATALIN [Concomitant]
  9. NIFEDIPINE [Concomitant]
  10. EUPRESSYL [Concomitant]
  11. BOCEPREVIR (SCH-503034) [Suspect]
     Indication: HEPATITIS C
     Dosage: 1.2 GM;QD;
     Dates: start: 20110321
  12. CELLCEPT [Concomitant]
  13. BEDELIX [Concomitant]

REACTIONS (15)
  - OEDEMA PERIPHERAL [None]
  - BLOOD CREATININE INCREASED [None]
  - NEUTROPENIA [None]
  - DYSPNOEA EXERTIONAL [None]
  - MYALGIA [None]
  - BACK PAIN [None]
  - ASTHENIA [None]
  - GAMMA-GLUTAMYLTRANSFERASE INCREASED [None]
  - ANAEMIA [None]
  - HYPOTENSION [None]
  - ASPARTATE AMINOTRANSFERASE INCREASED [None]
  - FLATULENCE [None]
  - BLOOD ALKALINE PHOSPHATASE INCREASED [None]
  - LEUKOPENIA [None]
  - THROMBOCYTOPENIA [None]
